FAERS Safety Report 13446086 (Version 3)
Quarter: 2017Q3

REPORT INFORMATION
  Report Type: Report from Study
  Country: None (occurrence: US)
  Receive Date: 20170417
  Receipt Date: 20170925
  Transmission Date: 20171127
  Serious: Yes (Hospitalization, Other)
  Sender: FDA-Public Use
  Company Number: US-ABBVIE-17K-163-1941221-00

PATIENT
  Age: 72 Year
  Sex: Female

DRUGS (7)
  1. LOSARTAN. [Concomitant]
     Active Substance: LOSARTAN
     Indication: HYPERTENSION
  2. ADVIL [Concomitant]
     Active Substance: IBUPROFEN
     Indication: PAIN
  3. TEMAZEPAM. [Concomitant]
     Active Substance: TEMAZEPAM
     Indication: INSOMNIA
  4. NICOTINE. [Suspect]
     Active Substance: NICOTINE
     Indication: CROHN^S DISEASE
     Route: 065
  5. HUMIRA [Suspect]
     Active Substance: ADALIMUMAB
     Indication: CROHN^S DISEASE
     Route: 058
     Dates: start: 201604, end: 201604
  6. HUMIRA [Suspect]
     Active Substance: ADALIMUMAB
     Route: 058
     Dates: start: 201604, end: 201608
  7. HUMIRA [Suspect]
     Active Substance: ADALIMUMAB
     Route: 058
     Dates: start: 201609

REACTIONS (6)
  - Urinary tract infection [Recovered/Resolved]
  - Rash [Recovered/Resolved]
  - Crohn^s disease [Unknown]
  - Blood potassium decreased [Recovered/Resolved]
  - Hallucination [Unknown]
  - Enteritis [Recovered/Resolved]

NARRATIVE: CASE EVENT DATE: 20170323
